FAERS Safety Report 5418596-X (Version None)
Quarter: 2007Q3

REPORT INFORMATION
  Report Type: 
  Country: None (occurrence: None)
  Receive Date: 20070718
  Receipt Date: 20060727
  Transmission Date: 20080115
  Serious: Yes (Other)
  Sender: FDA-Public Use
  Company Number: 2006094269

PATIENT
  Age: 60 Year
  Sex: Female
  Weight: 73.4827 kg

DRUGS (1)
  1. CELEBREX [Suspect]
     Indication: ARTHRITIS
     Dosage: 200 MG (1 IN 1 D)
     Dates: start: 20040315, end: 20050113

REACTIONS (4)
  - BACK PAIN [None]
  - CHEST PAIN [None]
  - MYOCARDIAL INFARCTION [None]
  - PAIN IN JAW [None]
